FAERS Safety Report 4364779-X (Version None)
Quarter: 2004Q2

REPORT INFORMATION
  Report Type: 
  Country: None (occurrence: None)
  Receive Date: 20040521
  Receipt Date: 20040503
  Transmission Date: 20050107
  Serious: Yes (Hospitalization, Other)
  Sender: FDA-Public Use
  Company Number: USA040566457

PATIENT
  Age: 88 Year
  Sex: Female
  Weight: 42 kg

DRUGS (3)
  1. ZYPREXA [Suspect]
     Indication: BIPOLAR DISORDER
     Dosage: 15 MG DAY
     Dates: start: 20020101
  2. LASIX [Concomitant]
  3. ATENOLOL [Concomitant]

REACTIONS (4)
  - DYSPNOEA [None]
  - LOSS OF CONSCIOUSNESS [None]
  - PNEUMONIA [None]
  - RESPIRATORY FAILURE [None]
